FAERS Safety Report 8098297 (Version 4)
Quarter: 2013Q4

REPORT INFORMATION
  Report Type: Spontaneous
  Country: US (occurrence: US)
  Receive Date: 20110819
  Receipt Date: 20131203
  Transmission Date: 20140711
  Serious: Yes (Hospitalization)
  Sender: FDA-Public Use
  Company Number: US-GLAXOSMITHKLINE-A0915665A

PATIENT
  Age: 63 Year
  Sex: Female
  Weight: 84.5 kg

DRUGS (5)
  1. AVANDIA [Suspect]
     Indication: DIABETES MELLITUS
     Dosage: 4MG PER DAY
     Route: 048
     Dates: start: 20020222, end: 200612
  2. PAROXETINE [Concomitant]
  3. NOVOLIN [Concomitant]
  4. CLONIDINE [Concomitant]
  5. LISINOPRIL [Concomitant]

REACTIONS (8)
  - Cerebrovascular accident [Unknown]
  - Nephropathy [Unknown]
  - Cardiac disorder [Unknown]
  - Cardiovascular disorder [Unknown]
  - Dyspnoea [Unknown]
  - Dyspnoea [Unknown]
  - Fatigue [Unknown]
  - Hyperlipidaemia [Unknown]
